FAERS Safety Report 14760631 (Version 3)
Quarter: 2018Q3

REPORT INFORMATION
  Report Type: Spontaneous
  Country: US (occurrence: US)
  Receive Date: 20180414
  Receipt Date: 20180727
  Transmission Date: 20181010
  Serious: No
  Sender: FDA-Public Use
  Company Number: US-009507513-1804USA005709

PATIENT
  Age: 25 Year
  Sex: Female
  Weight: 100.68 kg

DRUGS (1)
  1. NEXPLANON [Suspect]
     Active Substance: ETONOGESTREL
     Indication: CONTRACEPTION
     Dosage: 1 IMPLANT, UNK
     Route: 059
     Dates: start: 20170810, end: 20180405

REACTIONS (4)
  - Device breakage [Recovered/Resolved]
  - Vomiting [Not Recovered/Not Resolved]
  - Device kink [Recovered/Resolved]
  - Nausea [Not Recovered/Not Resolved]

NARRATIVE: CASE EVENT DATE: 20171104
